FAERS Safety Report 23620241 (Version 2)
Quarter: 2024Q3

REPORT INFORMATION
  Report Type: Spontaneous
  Country: US (occurrence: US)
  Receive Date: 20240312
  Receipt Date: 20240906
  Transmission Date: 20241017
  Serious: No
  Sender: GLAXOSMITHKLINE
  Company Number: US-GSK-US2024028931

PATIENT
  Sex: Female

DRUGS (1)
  1. BENLYSTA [Suspect]
     Active Substance: BELIMUMAB
     Indication: Product used for unknown indication
     Dosage: 200 MG

REACTIONS (3)
  - Nasopharyngitis [Unknown]
  - Illness [Not Recovered/Not Resolved]
  - Wrong technique in device usage process [Unknown]
